FAERS Safety Report 25323611 (Version 1)
Quarter: 2025Q2

REPORT INFORMATION
  Report Type: Spontaneous
  Country: US (occurrence: US)
  Receive Date: 20250516
  Receipt Date: 20250516
  Transmission Date: 20250716
  Serious: No
  Sender: MYLAN
  Company Number: US-MYLANLABS-2025M1038790

PATIENT
  Age: 77 Year
  Sex: Male

DRUGS (4)
  1. BREYNA [Suspect]
     Active Substance: BUDESONIDE\FORMOTEROL FUMARATE
     Indication: Product used for unknown indication
     Dosage: 160 PER 4.5 MICROGRAM, BID (TWO TIMES A DAY)
  2. BREYNA [Suspect]
     Active Substance: BUDESONIDE\FORMOTEROL FUMARATE
     Dosage: 160 PER 4.5 MICROGRAM, BID (TWO TIMES A DAY)
     Route: 055
  3. BREYNA [Suspect]
     Active Substance: BUDESONIDE\FORMOTEROL FUMARATE
     Dosage: 160 PER 4.5 MICROGRAM, BID (TWO TIMES A DAY)
     Route: 055
  4. BREYNA [Suspect]
     Active Substance: BUDESONIDE\FORMOTEROL FUMARATE
     Dosage: 160 PER 4.5 MICROGRAM, BID (TWO TIMES A DAY)

REACTIONS (3)
  - Device malfunction [Unknown]
  - Drug delivery system issue [Unknown]
  - Wrong technique in product usage process [Unknown]

NARRATIVE: CASE EVENT DATE: 20250429
